FAERS Safety Report 15034106 (Version 2)
Quarter: 2018Q3

REPORT INFORMATION
  Report Type: Spontaneous
  Country: GB (occurrence: GB)
  Receive Date: 20180620
  Receipt Date: 20180905
  Transmission Date: 20181010
  Serious: Yes (Hospitalization, Other)
  Sender: FDA-Public Use
  Company Number: GB-SUN PHARMACEUTICAL INDUSTRIES LTD-2018RR-173390

PATIENT
  Age: 63 Year
  Sex: Male

DRUGS (8)
  1. IRINOTECAN [Suspect]
     Active Substance: IRINOTECAN
     Indication: PRODUCT USED FOR UNKNOWN INDICATION
     Route: 065
  2. GEMCITABINE [Suspect]
     Active Substance: GEMCITABINE\GEMCITABINE HYDROCHLORIDE
     Indication: PANCREATIC CARCINOMA
     Dosage: 1,000 MG/M2 TO THE NEAREST 38 MG AS 2,100 MG GIVEN ON DAY 1, 8, 15 ON A 28?DAY CYCLE ()
     Route: 065
  3. FOLINIC ACID [Suspect]
     Active Substance: LEUCOVORIN
     Indication: PRODUCT USED FOR UNKNOWN INDICATION
     Route: 065
  4. OXALIPLATIN. [Suspect]
     Active Substance: OXALIPLATIN
     Indication: PRODUCT USED FOR UNKNOWN INDICATION
     Route: 065
  5. OXALIPLATIN. [Suspect]
     Active Substance: OXALIPLATIN
     Dosage: UNK
     Route: 065
  6. FLUOROURACIL. [Suspect]
     Active Substance: FLUOROURACIL
     Indication: PRODUCT USED FOR UNKNOWN INDICATION
     Route: 065
  7. FOLINIC ACID [Suspect]
     Active Substance: LEUCOVORIN
     Dosage: UNK
     Route: 065
  8. FLUOROURACIL. [Suspect]
     Active Substance: FLUOROURACIL
     Dosage: UNK
     Route: 065

REACTIONS (15)
  - Acute kidney injury [Recovering/Resolving]
  - Cardiotoxicity [Recovering/Resolving]
  - Fatigue [Unknown]
  - Cardiac disorder [Unknown]
  - Oedema peripheral [Unknown]
  - Renal impairment [Unknown]
  - Disease progression [Unknown]
  - Decreased appetite [Unknown]
  - Dyspnoea [Unknown]
  - Cachexia [Unknown]
  - Anaemia [Recovering/Resolving]
  - Cardiomyopathy [Recovering/Resolving]
  - Thrombocytopenia [Recovering/Resolving]
  - Neuropathy peripheral [Unknown]
  - Drug ineffective [Unknown]
